FAERS Safety Report 25890051 (Version 1)
Quarter: 2025Q4

REPORT INFORMATION
  Report Type: Spontaneous
  Country: EU (occurrence: EU)
  Receive Date: 20251007
  Receipt Date: 20251007
  Transmission Date: 20260117
  Serious: Yes (Congenital Anomaly)
  Sender: RANBAXY
  Company Number: EU-AEMPS-1695821

PATIENT
  Sex: Female
  Weight: 9 kg

DRUGS (1)
  1. ISOTRETINOIN [Suspect]
     Active Substance: ISOTRETINOIN
     Indication: Acne
     Dosage: UNKNOWN
     Route: 048
     Dates: start: 202301, end: 202302

REACTIONS (1)
  - Joubert syndrome [Not Recovered/Not Resolved]

NARRATIVE: CASE EVENT DATE: 20230615
